FAERS Safety Report 20460568 (Version 16)
Quarter: 2025Q3

REPORT INFORMATION
  Report Type: Report from Study
  Country: US (occurrence: US)
  Receive Date: 20220211
  Receipt Date: 20250725
  Transmission Date: 20251021
  Serious: Yes (Hospitalization, Other)
  Sender: JAZZ
  Company Number: US-JAZZ-2022-US-002602

PATIENT
  Age: 39 Year
  Sex: Female

DRUGS (19)
  1. XYREM [Suspect]
     Active Substance: SODIUM OXYBATE
     Indication: Narcolepsy
     Dosage: 2.25 GRAM, BID
     Dates: start: 201411, end: 201412
  2. XYREM [Suspect]
     Active Substance: SODIUM OXYBATE
     Indication: Cataplexy
  3. XYREM [Suspect]
     Active Substance: SODIUM OXYBATE
     Indication: Somnolence
     Dosage: 4.5 GRAM, BID
     Dates: start: 202005
  4. XYREM [Suspect]
     Active Substance: SODIUM OXYBATE
  5. NAPROXEN [Suspect]
     Active Substance: NAPROXEN
     Indication: Product used for unknown indication
  6. VALACYCLOVIR HYDROCHLORIDE [Concomitant]
     Active Substance: VALACYCLOVIR HYDROCHLORIDE
     Indication: Product used for unknown indication
     Dosage: UNK UNK, QD
     Dates: start: 20090101
  7. LORAZEPAM [Concomitant]
     Active Substance: LORAZEPAM
     Indication: Product used for unknown indication
     Dosage: UNK UNK, Q4H
     Dates: start: 20201011
  8. TYLENOL EXTRA STRENGTH [Concomitant]
     Active Substance: ACETAMINOPHEN
     Indication: Product used for unknown indication
  9. ALEVE [Concomitant]
     Active Substance: NAPROXEN SODIUM
     Indication: Product used for unknown indication
  10. METHOCARBAMOL AL [Concomitant]
     Indication: Product used for unknown indication
     Dosage: UNK, TID
  11. XANAX [Concomitant]
     Active Substance: ALPRAZOLAM
     Indication: Product used for unknown indication
  12. ADDERALL [Concomitant]
     Active Substance: AMPHETAMINE ASPARTATE\AMPHETAMINE SULFATE\DEXTROAMPHETAMINE SACCHARATE\DEXTROAMPHETAMINE SULFATE
     Indication: Product used for unknown indication
  13. HYDROXYZINE [Concomitant]
     Active Substance: HYDROXYZINE HYDROCHLORIDE
     Indication: Product used for unknown indication
  14. OLLY WOMEN^S MULTI [Concomitant]
     Indication: Product used for unknown indication
  15. VITAMINS NOS [Concomitant]
     Active Substance: VITAMINS
  16. CLINDAMYCIN HYDROCHLORIDE [Concomitant]
     Active Substance: CLINDAMYCIN HYDROCHLORIDE
     Indication: Product used for unknown indication
     Dates: start: 20240121, end: 20240126
  17. ZITHROMAX [Concomitant]
     Active Substance: AZITHROMYCIN DIHYDRATE
     Indication: Product used for unknown indication
     Dates: start: 20240120, end: 20240125
  18. SPIRONOLACTONE [Concomitant]
     Active Substance: SPIRONOLACTONE
     Indication: Product used for unknown indication
  19. CHLORHEXIDINE GLUCONATE [Concomitant]
     Active Substance: CHLORHEXIDINE GLUCONATE
     Indication: Product used for unknown indication

REACTIONS (23)
  - Substance use disorder [Unknown]
  - Spinal operation [Unknown]
  - Disability [Not Recovered/Not Resolved]
  - Dental caries [Unknown]
  - Sneezing [Unknown]
  - Cough [Unknown]
  - Dry throat [Unknown]
  - Hypoaesthesia [Unknown]
  - Oropharyngeal pain [Unknown]
  - Wrist fracture [Unknown]
  - Tremor [Unknown]
  - Brain fog [Unknown]
  - Headache [Unknown]
  - Tooth disorder [Unknown]
  - Rash [Recovered/Resolved]
  - Drug hypersensitivity [Unknown]
  - Amnesia [Unknown]
  - Oral herpes [Unknown]
  - Acne [Unknown]
  - Stress [Recovering/Resolving]
  - Head injury [Unknown]
  - Intentional product use issue [Unknown]
  - Product administration interrupted [Unknown]

NARRATIVE: CASE EVENT DATE: 20201001
